FAERS Safety Report 17911864 (Version 1)
Quarter: 2020Q2

REPORT INFORMATION
  Report Type: Spontaneous
  Country: HU (occurrence: HU)
  Receive Date: 20200618
  Receipt Date: 20200618
  Transmission Date: 20200714
  Serious: Yes (Other)
  Sender: FDA-Public Use
  Company Number: HU-ABBVIE-20K-076-3450054-00

PATIENT
  Age: 58 Year
  Sex: Female

DRUGS (5)
  1. VIEKIRAX [Suspect]
     Active Substance: OMBITASVIR\PARITAPREVIR\RITONAVIR
     Indication: CHRONIC HEPATITIS C
     Dosage: 12.5 MG OMBITASVIR, 75 MG PARITAPREVIR, 50 MG RITONAVIR/ TABLET?2 TABLETS AT MORNING
     Route: 048
     Dates: start: 20200520, end: 20200617
  2. ESOMEPRAZOLE. [Concomitant]
     Active Substance: ESOMEPRAZOLE MAGNESIUM
     Indication: GASTROINTESTINAL DISORDER PROPHYLAXIS
     Route: 048
     Dates: start: 201804
  3. EXVIERA [Suspect]
     Active Substance: DASABUVIR
     Indication: CHRONIC HEPATITIS C
     Dosage: 1-1 TABLET AT THE MORNING AND EVENING
     Route: 048
     Dates: start: 20200520, end: 20200617
  4. PENTASA [Concomitant]
     Active Substance: MESALAMINE
     Indication: PROCTITIS ULCERATIVE
     Route: 054
     Dates: start: 20200430
  5. IMURAN [Concomitant]
     Active Substance: AZATHIOPRINE
     Indication: PROCTITIS ULCERATIVE
     Route: 048
     Dates: start: 201804

REACTIONS (2)
  - Jaundice [Not Recovered/Not Resolved]
  - Hyperbilirubinaemia [Not Recovered/Not Resolved]

NARRATIVE: CASE EVENT DATE: 202006
